FAERS Safety Report 11057570 (Version 3)
Quarter: 2015Q2

REPORT INFORMATION
  Report Type: Spontaneous
  Country: KE (occurrence: KE)
  Receive Date: 20150422
  Receipt Date: 20150619
  Transmission Date: 20150821
  Serious: Yes (Hospitalization)
  Sender: FDA-Public Use
  Company Number: PHHY2015KE047609

PATIENT
  Age: 27 Year
  Sex: Female
  Weight: 56 kg

DRUGS (7)
  1. PREDNISOLONE. [Suspect]
     Active Substance: PREDNISOLONE
     Indication: DERMATITIS ALLERGIC
     Dosage: UNK
     Route: 065
     Dates: start: 20150303
  2. COARTEM [Suspect]
     Active Substance: ARTEMETHER\LUMEFANTRINE
     Indication: MALARIA
     Dosage: UNK
     Route: 065
     Dates: start: 20150303
  3. 3TC [Concomitant]
     Active Substance: LAMIVUDINE
     Indication: HIV INFECTION
     Route: 065
  4. KALETRA [Concomitant]
     Active Substance: LOPINAVIR\RITONAVIR
     Indication: HIV INFECTION
     Route: 065
  5. SEPTRIN [Concomitant]
     Active Substance: SULFAMETHOXAZOLE\TRIMETHOPRIM
     Indication: HIV INFECTION
     Route: 065
  6. TENOFOVIR DISOPROXIL FUMARATE [Concomitant]
     Active Substance: TENOFOVIR DISOPROXIL FUMARATE
     Indication: HIV INFECTION
     Route: 065
  7. PARACETAMOL [Concomitant]
     Active Substance: ACETAMINOPHEN
     Indication: PRODUCT USED FOR UNKNOWN INDICATION
     Dosage: UNK
     Route: 065
     Dates: start: 20150303

REACTIONS (14)
  - Pain of skin [Recovered/Resolved]
  - Rash pustular [Recovered/Resolved]
  - Stevens-Johnson syndrome [Recovered/Resolved]
  - Dysstasia [Recovered/Resolved]
  - Odynophagia [Recovered/Resolved]
  - Aphasia [Recovered/Resolved]
  - Ocular hyperaemia [Recovered/Resolved]
  - Rash pruritic [Recovered/Resolved]
  - Malaise [Recovered/Resolved]
  - Dermatitis bullous [Recovered/Resolved]
  - Peripheral swelling [Recovered/Resolved]
  - Eye discharge [Recovered/Resolved]
  - Rash generalised [Recovered/Resolved]
  - Swelling face [Recovered/Resolved]

NARRATIVE: CASE EVENT DATE: 20150309
